FAERS Safety Report 7638708-7 (Version None)
Quarter: 2011Q3

REPORT INFORMATION
  Report Type: 
  Country: None (occurrence: None)
  Receive Date: 20110718
  Receipt Date: 20110131
  Transmission Date: 20111222
  Serious: Yes (Hospitalization)
  Sender: FDA-Public Use
  Company Number: 20110131CINRY1798

PATIENT
  Sex: Female

DRUGS (5)
  1. ZOFRAN [Concomitant]
  2. CINRYZE [Suspect]
     Indication: HEREDITARY ANGIOEDEMA
  3. ATARAX [Concomitant]
  4. TRIAMINIC (CONTAC /00014501/) [Concomitant]
  5. LORTAB (VICODIN) [Concomitant]

REACTIONS (3)
  - OEDEMA PERIPHERAL [None]
  - ABDOMINAL PAIN [None]
  - HEREDITARY ANGIOEDEMA [None]
